FAERS Safety Report 19932362 (Version 1)
Quarter: 2021Q4

REPORT INFORMATION
  Report Type: Spontaneous
  Country: US (occurrence: US)
  Receive Date: 20211006
  Receipt Date: 20211006
  Transmission Date: 20220303
  Serious: No
  Sender: FDA-Public Use
  Company Number: None

PATIENT
  Sex: Female

DRUGS (1)
  1. PROLIA [Suspect]
     Active Substance: DENOSUMAB
     Indication: Osteoporosis
     Dosage: ?          OTHER FREQUENCY:Q6M;
     Route: 058
     Dates: start: 202107

REACTIONS (5)
  - Pyrexia [None]
  - Myalgia [None]
  - Nausea [None]
  - Herpes zoster [None]
  - Post herpetic neuralgia [None]
